FAERS Safety Report 9575034 (Version 1)
Quarter: 2013Q4

REPORT INFORMATION
  Report Type: Spontaneous
  Country: GB (occurrence: GB)
  Receive Date: 20131001
  Receipt Date: 20131001
  Transmission Date: 20140711
  Serious: Yes (Other)
  Sender: FDA-Public Use
  Company Number: GB-WATSON-2013-17402

PATIENT
  Age: 20 Year
  Sex: Female
  Weight: 44 kg

DRUGS (2)
  1. TRIMETHOPRIM (UNKNOWN) [Suspect]
     Indication: INFECTION
     Dosage: 200 MG, BID
     Route: 065
     Dates: start: 20130806, end: 20130813
  2. SALAMOL                            /00139501/ [Concomitant]
     Indication: CHEST PAIN
     Dosage: 1 DF, Q6H; 1 PUFF FOUR TIMES DAILY
     Route: 065
     Dates: start: 201307

REACTIONS (4)
  - Oropharyngeal blistering [Not Recovered/Not Resolved]
  - Oral mucosal blistering [Not Recovered/Not Resolved]
  - Tongue blistering [Not Recovered/Not Resolved]
  - Oral pain [Not Recovered/Not Resolved]
